FAERS Safety Report 19770570 (Version 2)
Quarter: 2021Q3

REPORT INFORMATION
  Report Type: Spontaneous
  Country: CN (occurrence: CN)
  Receive Date: 20210831
  Receipt Date: 20210831
  Transmission Date: 20211014
  Serious: Yes (Hospitalization, Other)
  Sender: FDA-Public Use
  Company Number: CN-SA-2021SA284881

PATIENT
  Age: 46 Year
  Sex: Male
  Weight: 66.5 kg

DRUGS (2)
  1. PARECOXIB SODIUM. [Suspect]
     Active Substance: PARECOXIB SODIUM
     Indication: ADJUVANT THERAPY
     Dosage: 40 MG, BID
     Route: 041
     Dates: start: 20210727, end: 20210728
  2. CLEXANE [Suspect]
     Active Substance: ENOXAPARIN SODIUM
     Indication: ADJUVANT THERAPY
     Dosage: 0.4 ML, QD
     Route: 058
     Dates: start: 20210726, end: 20210830

REACTIONS (1)
  - Oesophageal perforation [Recovering/Resolving]

NARRATIVE: CASE EVENT DATE: 20210730
